FAERS Safety Report 25655885 (Version 1)
Quarter: 2025Q3

REPORT INFORMATION
  Report Type: Spontaneous
  Country: EU (occurrence: EU)
  Receive Date: 20250807
  Receipt Date: 20250807
  Transmission Date: 20251021
  Serious: Yes (Other)
  Sender: PURDUE
  Company Number: EU-PURDUE PHARMA-USA-2025-0319508

PATIENT
  Age: 24 Year
  Sex: Male

DRUGS (1)
  1. OXYCODONE HYDROCHLORIDE [Suspect]
     Active Substance: OXYCODONE HYDROCHLORIDE
     Indication: Product used for unknown indication
     Route: 045

REACTIONS (4)
  - Psychotic disorder [Unknown]
  - Drug abuse [Unknown]
  - Counterfeit product administered [Unknown]
  - Product use issue [Unknown]
